FAERS Safety Report 11418815 (Version 1)
Quarter: 2015Q3

REPORT INFORMATION
  Report Type: Spontaneous
  Country: BR (occurrence: BR)
  Receive Date: 20150826
  Receipt Date: 20150826
  Transmission Date: 20151125
  Serious: Yes (Hospitalization)
  Sender: FDA-Public Use
  Company Number: BR-ACCORD-033203

PATIENT

DRUGS (1)
  1. IRINOTECAN [Suspect]
     Active Substance: IRINOTECAN
     Indication: PRODUCT USED FOR UNKNOWN INDICATION

REACTIONS (3)
  - Hypoaesthesia oral [Recovered/Resolved]
  - Tremor [Recovered/Resolved]
  - Tongue oedema [Recovered/Resolved]

NARRATIVE: CASE EVENT DATE: 20150615
